FAERS Safety Report 15798499 (Version 1)
Quarter: 2019Q1

REPORT INFORMATION
  Report Type: Spontaneous
  Country: PT (occurrence: PT)
  Receive Date: 20190108
  Receipt Date: 20190108
  Transmission Date: 20190417
  Serious: Yes (Death, Hospitalization)
  Sender: FDA-Public Use
  Company Number: PT-GLAXOSMITHKLINE-PT2018GSK232450

PATIENT
  Age: 63 Year
  Sex: Female

DRUGS (8)
  1. ACETYLCYSTEINE. [Suspect]
     Active Substance: ACETYLCYSTEINE
     Indication: GRANULOMATOSIS WITH POLYANGIITIS
  2. BUDESONIDE + FORMOTEROL [Concomitant]
     Active Substance: BUDESONIDE\FORMOTEROL
     Indication: ASTHMA
  3. AMINOPHYLLINE. [Concomitant]
     Active Substance: AMINOPHYLLINE
     Indication: ASTHMA
  4. CORTICOSTEROIDS NOS [Suspect]
     Active Substance: UNSPECIFIED INGREDIENT
     Indication: GRANULOMATOSIS WITH POLYANGIITIS
  5. FLURBIPROFEN. [Suspect]
     Active Substance: FLURBIPROFEN
     Indication: GRANULOMATOSIS WITH POLYANGIITIS
  6. CYCLOPHOSPHAMIDE. [Suspect]
     Active Substance: CYCLOPHOSPHAMIDE
     Indication: GRANULOMATOSIS WITH POLYANGIITIS
  7. LOSARTAN. [Concomitant]
     Active Substance: LOSARTAN
     Indication: HYPERTENSION
  8. CEFUROXIME. [Suspect]
     Active Substance: CEFUROXIME
     Indication: GRANULOMATOSIS WITH POLYANGIITIS

REACTIONS (1)
  - Drug ineffective [Fatal]
